FAERS Safety Report 7018669-4 (Version None)
Quarter: 2010Q3

REPORT INFORMATION
  Report Type: 
  Country: None (occurrence: None)
  Receive Date: 20100928
  Receipt Date: 20100609
  Transmission Date: 20110219
  Serious: No
  Sender: FDA-Public Use
  Company Number: US-MYLANLABS-2010S1010380

PATIENT
  Age: 42 Year
  Sex: Male
  Weight: 95.26 kg

DRUGS (3)
  1. VENLAFAXINE HYDROCHLORIDE [Suspect]
     Indication: DEPRESSION
     Route: 048
     Dates: start: 20100101, end: 20100101
  2. VENLAFAXINE HYDROCHLORIDE [Suspect]
     Route: 048
     Dates: start: 20100101, end: 20100101
  3. VENLAFAXINE HYDROCHLORIDE [Suspect]
     Route: 048
     Dates: start: 20100101, end: 20100101

REACTIONS (6)
  - DIZZINESS [None]
  - INSOMNIA [None]
  - NYSTAGMUS [None]
  - PARAESTHESIA [None]
  - PHOTOPHOBIA [None]
  - RESTLESSNESS [None]
